FAERS Safety Report 7258035-X (Version None)
Quarter: 2011Q1

REPORT INFORMATION
  Report Type: 
  Country: None (occurrence: None)
  Receive Date: 20110129
  Receipt Date: 20100616
  Transmission Date: 20110831
  Serious: No
  Sender: FDA-Public Use
  Company Number: US-ABBOTT-10P-163-0651683-00

PATIENT
  Age: 54 Year
  Sex: Male

DRUGS (4)
  1. HUMIRA [Suspect]
     Dates: start: 20100611
  2. UNKNOWN MEDICATION [Concomitant]
     Indication: SEASONAL ALLERGY
  3. HUMIRA [Suspect]
     Indication: PRODUCT USED FOR UNKNOWN INDICATION
     Dates: start: 20100528
  4. HUMIRA [Suspect]

REACTIONS (1)
  - DIZZINESS [None]
